FAERS Safety Report 4382385-8 (Version None)
Quarter: 2004Q2

REPORT INFORMATION
  Report Type: 
  Country: None (occurrence: None)
  Receive Date: 20040622
  Receipt Date: 20040614
  Transmission Date: 20050107
  Serious: Yes (Other)
  Sender: FDA-Public Use
  Company Number: US-BRISTOL-MYERS SQUIBB COMPANY-12615258

PATIENT

DRUGS (1)
  1. MAXIPIME [Suspect]

REACTIONS (2)
  - HEPATIC FAILURE [None]
  - RENAL FAILURE ACUTE [None]
